FAERS Safety Report 8889032 (Version 6)
Quarter: 2013Q1

REPORT INFORMATION
  Report Type: Spontaneous
  Country: US (occurrence: US)
  Receive Date: 20121106
  Receipt Date: 20130306
  Transmission Date: 20140127
  Serious: Yes (Hospitalization, Other)
  Sender: FDA-Public Use
  Company Number: US-MERCK-1211USA000272

PATIENT
  Age: 64 None
  Sex: Female

DRUGS (10)
  1. PEGINTRON [Suspect]
     Indication: HEPATITIS C
     Dosage: UNK
     Dates: start: 20050101, end: 20050207
  2. PEGINTRON [Suspect]
     Dosage: UNK
     Dates: start: 20061006, end: 20061103
  3. PEGINTRON [Suspect]
     Dosage: UNK
     Dates: start: 20071005, end: 20071123
  4. PEGINTRON [Suspect]
     Dosage: UNK
     Route: 048
     Dates: start: 20130104, end: 20130226
  5. RIBAVIRIN [Suspect]
     Indication: HEPATITIS C
     Dosage: UNK
     Dates: start: 20050101, end: 20050207
  6. RIBAVIRIN [Suspect]
     Dosage: UNK
     Route: 048
     Dates: start: 20061006, end: 20061103
  7. RIBAVIRIN [Suspect]
     Dosage: UNK
     Route: 048
     Dates: start: 20071005, end: 20071123
  8. RIBAVIRIN [Suspect]
     Dosage: UNK
     Route: 048
     Dates: start: 20130104, end: 20130226
  9. VICTRELIS [Suspect]
     Indication: HEPATITIS C
     Dosage: UNK
     Route: 048
     Dates: start: 20130208, end: 20130226
  10. EQUALINE NICOTINE LOZENGES [Concomitant]

REACTIONS (42)
  - Hypothyroidism [Unknown]
  - Chronic obstructive pulmonary disease [Unknown]
  - Thyroid disorder [Unknown]
  - Pulmonary fibrosis [Unknown]
  - Radioactive iodine therapy [Unknown]
  - Chronic obstructive pulmonary disease [Unknown]
  - Cholecystectomy [Unknown]
  - Gallbladder disorder [Unknown]
  - Gastrointestinal disorder [Unknown]
  - Abdominal mass [Unknown]
  - Hypertension [Unknown]
  - Gastrooesophageal reflux disease [Unknown]
  - Nervousness [Unknown]
  - Respiratory disorder [Unknown]
  - Abdominal pain [Unknown]
  - Decreased appetite [Unknown]
  - Weight decreased [Unknown]
  - Anxiety [Unknown]
  - Chest pain [Unknown]
  - Pulmonary mass [Unknown]
  - Lung disorder [Unknown]
  - Abdominal mass [Unknown]
  - Snoring [Unknown]
  - Anxiety [Unknown]
  - Depression [Unknown]
  - Renal disorder [Unknown]
  - Anxiety [Unknown]
  - Amnesia [Unknown]
  - Abdominal mass [Unknown]
  - Gallbladder disorder [Unknown]
  - Weight decreased [Unknown]
  - Hypertension [Unknown]
  - Fatigue [Not Recovered/Not Resolved]
  - Nausea [Unknown]
  - Diarrhoea [Unknown]
  - Abdominal pain [Unknown]
  - Hyperhidrosis [Unknown]
  - Dehydration [Unknown]
  - Hypertension [Unknown]
  - Headache [Not Recovered/Not Resolved]
  - Dyspnoea [Not Recovered/Not Resolved]
  - Dysphagia [Unknown]
